FAERS Safety Report 15360389 (Version 2)
Quarter: 2018Q3

REPORT INFORMATION
  Report Type: Spontaneous
  Country: US (occurrence: US)
  Receive Date: 20180907
  Receipt Date: 20180913
  Transmission Date: 20181010
  Serious: No
  Sender: FDA-Public Use
  Company Number: US-PFIZER INC-2018360564

PATIENT
  Age: 39 Year
  Sex: Female

DRUGS (2)
  1. XELJANZ [Suspect]
     Active Substance: TOFACITINIB CITRATE
     Indication: RHEUMATOID ARTHRITIS
     Dosage: 5 MG, UNK
  2. XELJANZ [Suspect]
     Active Substance: TOFACITINIB CITRATE
     Dosage: 5 MG, 2X/DAY [QUANTITY # 60 (30 DAYS)/14 DAYS, 28 TABLETS/(UP TO 28 DAYS, 56 TABLETS), 5 REFILLS]
     Route: 048
     Dates: start: 20160714

REACTIONS (2)
  - Fibromyalgia [Not Recovered/Not Resolved]
  - Arthralgia [Not Recovered/Not Resolved]
